FAERS Safety Report 6248640-1 (Version None)
Quarter: 2009Q2

REPORT INFORMATION
  Report Type: 
  Country: None (occurrence: None)
  Receive Date: 20090629
  Receipt Date: 20090622
  Transmission Date: 20091009
  Serious: Yes (Hospitalization)
  Sender: FDA-Public Use
  Company Number: US-JNJFOC-20090502317

PATIENT
  Sex: Female
  Weight: 52.16 kg

DRUGS (1)
  1. DURAGESIC-100 [Suspect]
     Indication: BACK PAIN
     Route: 062

REACTIONS (6)
  - ANAEMIA [None]
  - INAPPROPRIATE SCHEDULE OF DRUG ADMINISTRATION [None]
  - IRRITABLE BOWEL SYNDROME [None]
  - PNEUMONIA [None]
  - SCIATICA [None]
  - SKELETAL INJURY [None]
